FAERS Safety Report 5123360-5 (Version None)
Quarter: 2006Q4

REPORT INFORMATION
  Report Type: 
  Country: None (occurrence: None)
  Receive Date: 20061005
  Receipt Date: 20060928
  Transmission Date: 20070319
  Serious: Yes (Hospitalization)
  Sender: FDA-Public Use
  Company Number: BR-2006-028908

PATIENT
  Age: 38 Year
  Sex: Female
  Weight: 69 kg

DRUGS (4)
  1. MIRENA [Suspect]
     Indication: MENORRHAGIA
     Dosage: 20 UG/DAY, CONT, INTRA-UTERINE
     Route: 015
     Dates: start: 20050101, end: 20060913
  2. DEPAKOTE [Concomitant]
  3. ATENOLOL [Concomitant]
  4. STILNOX /FRA/ (ZOLPIDEM) [Concomitant]

REACTIONS (2)
  - BREAST CANCER FEMALE [None]
  - NERVOUSNESS [None]
